FAERS Safety Report 5618226-8 (Version None)
Quarter: 2008Q1

REPORT INFORMATION
  Report Type: 
  Country: None (occurrence: None)
  Receive Date: 20080206
  Receipt Date: 20080206
  Transmission Date: 20080703
  Serious: No
  Sender: FDA-Public Use
  Company Number: None

PATIENT
  Age: 50 Year
  Sex: Female
  Weight: 63.5036 kg

DRUGS (4)
  1. WELLBUTRIN XL [Suspect]
     Indication: AMNESIA
     Dosage: ONE DAY PO
     Route: 048
     Dates: start: 20070123, end: 20070130
  2. WELLBUTRIN XL [Suspect]
     Indication: DISTURBANCE IN ATTENTION
     Dosage: ONE DAY PO
     Route: 048
     Dates: start: 20070123, end: 20070130
  3. ELMIRON [Concomitant]
  4. SPRINTEC 28 [Concomitant]

REACTIONS (9)
  - CONSTIPATION [None]
  - DIZZINESS [None]
  - DRUG EFFECT DECREASED [None]
  - FATIGUE [None]
  - HAEMATOCHEZIA [None]
  - HYPERSENSITIVITY [None]
  - NAUSEA [None]
  - RASH [None]
  - RETCHING [None]
